FAERS Safety Report 21188802 (Version 1)
Quarter: 2022Q3

REPORT INFORMATION
  Report Type: Report from Study
  Country: CN (occurrence: CN)
  Receive Date: 20220809
  Receipt Date: 20220809
  Transmission Date: 20221027
  Serious: Yes (Death, Other)
  Sender: FDA-Public Use
  Company Number: CN-SUN PHARMACEUTICAL INDUSTRIES LTD-2022R1-347656

PATIENT

DRUGS (7)
  1. CISPLATIN [Suspect]
     Active Substance: CISPLATIN
     Indication: Chemotherapy
     Route: 065
  2. VINCRISTINE [Suspect]
     Active Substance: VINCRISTINE
     Indication: Chemotherapy
     Dosage: 2 MILLIGRAM, I.V. BOLUS INJECTION (3 H BEFORE THE START OF ACTINOMYCIN D),DAY 1
     Route: 042
  3. METHOTREXATE [Suspect]
     Active Substance: METHOTREXATE
     Indication: Chemotherapy
     Route: 065
  4. ACTINOMYCIN D [Suspect]
     Active Substance: DACTINOMYCIN
     Indication: Chemotherapy
     Dosage: 200 MICROGRAM/SQ. METER, I.V. INFUSION OVER 30 MIN, DAY 1-5
     Route: 042
  5. CYCLOPHOSPHAMIDE [Suspect]
     Active Substance: CYCLOPHOSPHAMIDE
     Indication: Chemotherapy
     Route: 065
  6. ETOPOSIDE [Suspect]
     Active Substance: ETOPOSIDE
     Indication: Chemotherapy
     Dosage: 100 MILLIGRAM/SQ. METER, I.V. INFUSION OVER 30 MIN, DAY 1-5
     Route: 042
  7. FLOXURIDINE [Suspect]
     Active Substance: FLOXURIDINE
     Indication: Chemotherapy
     Route: 065

REACTIONS (1)
  - Acute myeloid leukaemia [Fatal]
